FAERS Safety Report 5171451-5 (Version None)
Quarter: 2006Q4

REPORT INFORMATION
  Report Type: 
  Country: None (occurrence: None)
  Receive Date: 20061205
  Receipt Date: 20061121
  Transmission Date: 20070319
  Serious: Yes (Hospitalization)
  Sender: FDA-Public Use
  Company Number: 163-21880-06100533

PATIENT
  Age: 59 Year
  Sex: Female

DRUGS (6)
  1. REVLIMID [Suspect]
     Indication: CHRONIC MYELOID LEUKAEMIA
     Dosage: 5 MG, 1 IN 1 D, ORAL
     Route: 048
     Dates: start: 20060816, end: 20060907
  2. REVLIMID [Suspect]
     Indication: MYELOID METAPLASIA
     Dosage: 5 MG, 1 IN 1 D, ORAL
     Route: 048
     Dates: start: 20060816, end: 20060907
  3. REVLIMID [Suspect]
     Indication: MYELOPROLIFERATIVE DISORDER
     Dosage: 5 MG, 1 IN 1 D, ORAL
     Route: 048
     Dates: start: 20060816, end: 20060907
  4. PREDNISONE TAB [Suspect]
     Indication: CHRONIC MYELOID LEUKAEMIA
     Dates: start: 20060801, end: 20060801
  5. PREDNISONE TAB [Suspect]
     Indication: MYELOID METAPLASIA
     Dates: start: 20060801, end: 20060801
  6. PREDNISONE TAB [Suspect]
     Indication: MYELOPROLIFERATIVE DISORDER
     Dates: start: 20060801, end: 20060801

REACTIONS (5)
  - DISEASE PROGRESSION [None]
  - FULL BLOOD COUNT ABNORMAL [None]
  - MYELODYSPLASTIC SYNDROME [None]
  - THERAPY NON-RESPONDER [None]
  - WHITE BLOOD CELL COUNT INCREASED [None]
